FAERS Safety Report 18341520 (Version 1)
Quarter: 2020Q4

REPORT INFORMATION
  Report Type: Spontaneous
  Country: DE (occurrence: DE)
  Receive Date: 20201004
  Receipt Date: 20201004
  Transmission Date: 20210113
  Serious: Yes (Hospitalization)
  Sender: FDA-Public Use
  Company Number: DE-TEVA-2020-DE-1834307

PATIENT
  Age: 52 Year
  Sex: Female
  Weight: 70 kg

DRUGS (3)
  1. LEVOTHYROXINE SODIUM. [Concomitant]
     Active Substance: LEVOTHYROXINE SODIUM
     Dosage: 50 MICROGRAM DAILY;  1-0-0-0
     Route: 048
  2. BUPROPION. [Concomitant]
     Active Substance: BUPROPION
     Dosage: 50 MILLIGRAM DAILY;  1-0-0-0
     Route: 048
  3. VENLAFAXIN [Suspect]
     Active Substance: VENLAFAXINE HYDROCHLORIDE
     Dosage: .5 DOSAGE FORMS DAILY; 225 MG, 0.5-0-0-0
     Route: 048

REACTIONS (4)
  - Depressed mood [Unknown]
  - Nausea [Unknown]
  - Vomiting [Unknown]
  - Haematemesis [Unknown]
